FAERS Safety Report 8619955-4 (Version None)
Quarter: 2012Q3

REPORT INFORMATION
  Report Type: 
  Country: None (occurrence: None)
  Receive Date: 20120817
  Receipt Date: 20120817
  Transmission Date: 20120928
  Serious: Yes (Other)
  Sender: FDA-Public Use
  Company Number: None

PATIENT
  Age: 25 Year
  Sex: Male
  Weight: 79.8331 kg

DRUGS (2)
  1. OXYCONTIN [Suspect]
     Indication: JOINT SURGERY
     Dosage: 10MG, TWICE DAILY, PO
     Route: 048
     Dates: start: 20120501, end: 20120815
  2. OXYCONTIN [Suspect]
     Indication: PAIN
     Dosage: 10MG, TWICE DAILY, PO
     Route: 048
     Dates: start: 20120501, end: 20120815

REACTIONS (4)
  - ABDOMINAL PAIN [None]
  - ABDOMINAL PAIN UPPER [None]
  - GASTROINTESTINAL PAIN [None]
  - AMYLASE INCREASED [None]
